FAERS Safety Report 24583465 (Version 1)
Quarter: 2024Q4

REPORT INFORMATION
  Report Type: Spontaneous
  Country: US (occurrence: US)
  Receive Date: 20241106
  Receipt Date: 20241106
  Transmission Date: 20250115
  Serious: Yes (Hospitalization)
  Sender: TEVA
  Company Number: US-TEVA-VS-3260738

PATIENT
  Age: 59 Year
  Sex: Female

DRUGS (4)
  1. DOXYCYCLINE [Suspect]
     Active Substance: DOXYCYCLINE
     Indication: Staphylococcal infection
     Route: 048
  2. LINEZOLID [Suspect]
     Active Substance: LINEZOLID
     Indication: Staphylococcal infection
     Route: 048
  3. CEPHALEXIN [Suspect]
     Active Substance: CEPHALEXIN
     Indication: Staphylococcal infection
     Route: 048
  4. SULFAMETHOXAZOLE\TRIMETHOPRIM [Suspect]
     Active Substance: SULFAMETHOXAZOLE\TRIMETHOPRIM
     Indication: Staphylococcal infection
     Route: 048

REACTIONS (3)
  - Pyrexia [Unknown]
  - Hepatitis [Unknown]
  - Acute kidney injury [Unknown]
